FAERS Safety Report 9340384 (Version 2)
Quarter: 2013Q4

REPORT INFORMATION
  Report Type: Report from Study
  Country: JP (occurrence: JP)
  Receive Date: 20130610
  Receipt Date: 20131202
  Transmission Date: 20140711
  Serious: Yes (Other)
  Sender: FDA-Public Use
  Company Number: JP-009507513-1305JPN007644

PATIENT
  Age: 39 Year
  Sex: Female
  Weight: 55 kg

DRUGS (14)
  1. GANIRELIX ACETATE [Suspect]
     Indication: PREVENTION OF PREMATURE OVULATION
     Dosage: 0.25 MG, QD
     Route: 058
     Dates: start: 20111117, end: 20111120
  2. PLANOVAR [Concomitant]
     Indication: IN VITRO FERTILISATION
     Dosage: 1 DF, QD
     Route: 048
     Dates: start: 20111025, end: 20111105
  3. FOLLITROPIN ALFA [Concomitant]
     Indication: IN VITRO FERTILISATION
     Dosage: 187.5 UNDER 1000 UNIT, QD
     Route: 058
     Dates: start: 20111111, end: 20111114
  4. FOLLITROPIN ALFA [Concomitant]
     Dosage: 150 UNDER 100 UNIT, QD
     Route: 058
     Dates: start: 20111116, end: 20111116
  5. MENOTROPINS [Concomitant]
     Indication: IN VITRO FERTILISATION
     Dosage: 150 UNDER 1000 UNIT, QD
     Route: 030
     Dates: start: 20111117, end: 20111120
  6. FOLYRMON P [Concomitant]
     Indication: IN VITRO FERTILISATION
     Dosage: 150 UNDER 1000 UNIT, QD
     Route: 030
     Dates: start: 20111115, end: 20111115
  7. BUSERECUR [Concomitant]
     Indication: OVULATION INDUCTION
     Dosage: 600 MICROGRAM, QD
     Route: 065
     Dates: start: 20111120, end: 20111120
  8. JULINA [Concomitant]
     Indication: IN VITRO FERTILISATION
     Dosage: 3 MG, DIVIDED DOSE FREQUENCY
     Route: 048
     Dates: start: 20120218, end: 20120326
  9. BUFFERIN [Concomitant]
     Indication: IN VITRO FERTILISATION
     Dosage: 81 MG, DIVIDED DOSE FREQUENCY
     Route: 048
     Dates: start: 20120218, end: 20120326
  10. OOPHORMIN LUTEUM [Concomitant]
     Indication: IN VITRO FERTILISATION
     Dosage: 125 MG, DIVIDED DOSE FREQUENCY
     Route: 030
     Dates: start: 20120317, end: 20120317
  11. OOPHORMIN LUTEUM [Concomitant]
     Dosage: 125 MG, DIVIDED DOSE FREQUENCY
     Route: 030
     Dates: start: 20120324, end: 20120324
  12. PROGESTERONE [Concomitant]
     Indication: IN VITRO FERTILISATION
     Dosage: 200 MG, DIVIDED DOSE FREQUNCY
     Route: 067
     Dates: start: 20120311, end: 20120316
  13. PROGESTERONE [Concomitant]
     Dosage: 200 MG, DIVIDED DOSE FREQUNCY
     Route: 067
     Dates: start: 20120318, end: 20120323
  14. PROGESTERONE [Concomitant]
     Dosage: 200 MG, DIVIDED DOSE FREQUNCY
     Route: 067
     Dates: start: 20120325, end: 20120325

REACTIONS (1)
  - Abortion missed [Recovered/Resolved]
